FAERS Safety Report 7276430-X (Version None)
Quarter: 2011Q1

REPORT INFORMATION
  Report Type: 
  Country: None (occurrence: None)
  Receive Date: 20110131
  Receipt Date: 20110118
  Transmission Date: 20110831
  Serious: Yes (Hospitalization)
  Sender: FDA-Public Use
  Company Number: 2011SP002222

PATIENT
  Age: 68 Year
  Sex: Male

DRUGS (3)
  1. NOXAFIL [Suspect]
     Indication: BRONCHOPULMONARY ASPERGILLOSIS
     Dosage: PO
     Route: 048
     Dates: start: 20100408, end: 20100422
  2. VFEND [Suspect]
     Indication: BRONCHOPULMONARY ASPERGILLOSIS
     Dosage: 400 MG; PO
     Route: 048
     Dates: start: 20100210, end: 20100331
  3. CANCIDAS [Suspect]
     Indication: BRONCHOPULMONARY ASPERGILLOSIS
     Dosage: IV
     Route: 042
     Dates: start: 20100401, end: 20100407

REACTIONS (9)
  - PHOTOPSIA [None]
  - VISUAL IMPAIRMENT [None]
  - BRONCHITIS [None]
  - TOXICITY TO VARIOUS AGENTS [None]
  - FEBRILE NEUTROPENIA [None]
  - SUPERINFECTION [None]
  - EYE PAIN [None]
  - OCULAR DISCOMFORT [None]
  - LEUKOPENIA [None]
